FAERS Safety Report 4653933-5 (Version None)
Quarter: 2005Q2

REPORT INFORMATION
  Report Type: 
  Country: None (occurrence: None)
  Receive Date: 20050505
  Receipt Date: 20050425
  Transmission Date: 20051028
  Serious: Yes (Hospitalization, Other)
  Sender: FDA-Public Use
  Company Number: BR-ABBOTT-05P-020-0298714-00

PATIENT
  Sex: Male

DRUGS (3)
  1. DEPAKENE [Suspect]
     Indication: BIPOLAR DISORDER
     Route: 048
     Dates: start: 20041101, end: 20050407
  2. DEPAKENE [Suspect]
     Route: 048
     Dates: start: 20050408, end: 20050418
  3. CHLORPROMAZINE [Concomitant]
     Indication: BIPOLAR DISORDER
     Route: 048
     Dates: start: 20041101

REACTIONS (6)
  - ERYTHEMA [None]
  - MENTAL DISORDER [None]
  - OEDEMA [None]
  - PRURITUS [None]
  - RASH [None]
  - SKIN EXFOLIATION [None]
